FAERS Safety Report 4855120-4 (Version None)
Quarter: 2005Q4

REPORT INFORMATION
  Report Type: 
  Country: None (occurrence: None)
  Receive Date: 20051214
  Receipt Date: 20051201
  Transmission Date: 20060501
  Serious: Yes (Hospitalization, Other)
  Sender: FDA-Public Use
  Company Number: 2005163613

PATIENT
  Age: 77 Year
  Sex: Male
  Weight: 80.2867 kg

DRUGS (6)
  1. LYRICA [Suspect]
     Indication: NEURALGIA
     Dosage: 50 MG (50 MG, 1 IN 1 D),
     Dates: start: 20051104, end: 20051122
  2. CYMBALTA [Suspect]
     Indication: DEPRESSION
     Dosage: (30 MG,)
     Dates: start: 20051021, end: 20051122
  3. CYMBALTA [Suspect]
     Indication: NEURALGIA
     Dosage: (30 MG,)
     Dates: start: 20051021, end: 20051122
  4. WARFARIN SODIUM [Concomitant]
  5. LASIX [Concomitant]
  6. LOPRESSOR [Concomitant]

REACTIONS (10)
  - ACTIVITIES OF DAILY LIVING IMPAIRED [None]
  - DEMENTIA [None]
  - DRUG TOXICITY [None]
  - ELECTROENCEPHALOGRAM ABNORMAL [None]
  - FALL [None]
  - HYPOTENSION [None]
  - INSOMNIA [None]
  - MOBILITY DECREASED [None]
  - MUSCLE FATIGUE [None]
  - PAIN [None]
